FAERS Safety Report 14207643 (Version 1)
Quarter: 2017Q4

REPORT INFORMATION
  Report Type: Spontaneous
  Country: US (occurrence: US)
  Receive Date: 20171121
  Receipt Date: 20171121
  Transmission Date: 20180321
  Serious: No
  Sender: FDA-Public Use
  Company Number: US-JNJFOC-20171031116

PATIENT
  Age: 82 Year
  Sex: Female
  Weight: 113 kg

DRUGS (4)
  1. POTASSIUM [Concomitant]
     Active Substance: POTASSIUM
  2. IMBRUVICA [Suspect]
     Active Substance: IBRUTINIB
     Indication: CHRONIC LYMPHOCYTIC LEUKAEMIA
     Route: 048
     Dates: start: 20170131
  3. LEVOTHYROXINE. [Concomitant]
     Active Substance: LEVOTHYROXINE
  4. LASIX [Concomitant]
     Active Substance: FUROSEMIDE

REACTIONS (2)
  - Swelling [Not Recovered/Not Resolved]
  - Weight increased [Not Recovered/Not Resolved]

NARRATIVE: CASE EVENT DATE: 201709
